FAERS Safety Report 8665018 (Version 6)
Quarter: 2014Q3

REPORT INFORMATION
  Report Type: Report from Study
  Country: JP (occurrence: JP)
  Receive Date: 20120715
  Receipt Date: 20140808
  Transmission Date: 20150326
  Serious: Yes (Hospitalization)
  Sender: FDA-Public Use
  Company Number: JP-MSD-0710USA02304

PATIENT
  Age: 40 Year
  Sex: Male

DRUGS (16)
  1. STOCRIN TABLETS 200MG [Suspect]
     Active Substance: EFAVIRENZ
     Dosage: 600 MG DAILY
     Route: 048
     Dates: start: 20090717, end: 20091016
  2. EPIVIR [Suspect]
     Active Substance: LAMIVUDINE
     Dosage: 300 MG, QD
     Route: 048
     Dates: start: 20050803, end: 20071213
  3. NORVIR [Suspect]
     Active Substance: RITONAVIR
     Dosage: 100MG DAILY
     Route: 048
     Dates: start: 20110119, end: 20110630
  4. KALETRA [Suspect]
     Active Substance: LOPINAVIR\RITONAVIR
     Indication: HIV INFECTION
     Dosage: 4 DF DAILY
     Route: 048
     Dates: start: 20070511, end: 20091016
  5. ISENTRESS [Suspect]
     Active Substance: RALTEGRAVIR POTASSIUM
     Indication: HIV INFECTION
     Dosage: 800MG DAILY
     Route: 048
     Dates: start: 20091016, end: 20100930
  6. EPIVIR [Suspect]
     Active Substance: LAMIVUDINE
     Indication: HIV INFECTION
     Dosage: 150 MG, BID
     Route: 048
     Dates: start: 20050722, end: 20050802
  7. VIREAD [Suspect]
     Active Substance: TENOFOVIR DISOPROXIL FUMARATE
     Indication: HIV INFECTION
     Dosage: 300MG DAILY
     Route: 048
     Dates: start: 20050802, end: 20071213
  8. REYATAZ [Suspect]
     Active Substance: ATAZANAVIR SULFATE
     Indication: HIV INFECTION
     Dosage: 300MG DAILY
     Route: 048
     Dates: start: 20041221, end: 20050121
  9. REYATAZ [Suspect]
     Active Substance: ATAZANAVIR SULFATE
     Dosage: 300MG DAILY
     Route: 048
     Dates: start: 20050622, end: 20070510
  10. STOCRIN TABLETS 200MG [Suspect]
     Active Substance: EFAVIRENZ
     Dosage: 600 MG DAILY
     Route: 048
     Dates: start: 20051209, end: 20070711
  11. KALETRA [Suspect]
     Active Substance: LOPINAVIR\RITONAVIR
     Indication: HIV INFECTION
     Dosage: 6 DF DAILY
     Route: 048
     Dates: start: 20040514, end: 20040530
  12. TRUVADA [Suspect]
     Active Substance: EMTRICITABINE\TENOFOVIR DISOPROXIL FUMARATE
     Indication: HIV INFECTION
     Dosage: 1 DF DAILY
     Route: 048
     Dates: start: 20071214, end: 20101001
  13. STOCRIN TABLETS 200MG [Suspect]
     Active Substance: EFAVIRENZ
     Indication: HIV INFECTION
     Dosage: 600 MG DAILY
     Route: 048
     Dates: start: 20040614, end: 20041221
  14. NORVIR [Suspect]
     Active Substance: RITONAVIR
     Indication: HIV INFECTION
     Dosage: 100MG DAILY
     Route: 048
     Dates: start: 20041221, end: 20050121
  15. TRUVADA [Suspect]
     Active Substance: EMTRICITABINE\TENOFOVIR DISOPROXIL FUMARATE
     Dosage: 1 DF DAILY
     Route: 048
     Dates: start: 20110701
  16. NORVIR [Suspect]
     Active Substance: RITONAVIR
     Dosage: 100MG DAILY
     Route: 048
     Dates: start: 20050622, end: 20070510

REACTIONS (1)
  - Diabetes mellitus [Not Recovered/Not Resolved]

NARRATIVE: CASE EVENT DATE: 200703
